FAERS Safety Report 7361735 (Version 3)
Quarter: 2012Q4

REPORT INFORMATION
  Report Type: 
  Country: CA (occurrence: CA)
  Receive Date: 20100421
  Receipt Date: 20121106
  Transmission Date: 20130627
  Serious: Yes (Other)
  Sender: FDA-Public Use
  Company Number: PHHY2009CA20258

PATIENT
  Sex: Male

DRUGS (3)
  1. SANDOSTATIN LAR [Suspect]
     Indication: ACROMEGALY
     Dosage: 20 mg, QMO
     Route: 030
     Dates: start: 20081218
  2. SANDOSTATIN LAR [Suspect]
     Dosage: 30 mg, UNK
  3. SANDOSTATIN LAR [Suspect]
     Dosage: 40 mg, QMO
     Route: 030

REACTIONS (8)
  - Blood glucose increased [Unknown]
  - Lethargy [Unknown]
  - Feeling abnormal [Unknown]
  - Decreased appetite [Unknown]
  - Malaise [Unknown]
  - Diarrhoea [Not Recovered/Not Resolved]
  - Fatigue [Unknown]
  - Asthenia [Unknown]
